FAERS Safety Report 4909188-7 (Version None)
Quarter: 2006Q1

REPORT INFORMATION
  Report Type: 
  Country: None (occurrence: None)
  Receive Date: 20060213
  Receipt Date: 20031230
  Transmission Date: 20060701
  Serious: Yes (Hospitalization)
  Sender: FDA-Public Use
  Company Number: FR-AVENTIS-200314990FR

PATIENT
  Age: 76 Year
  Sex: Female

DRUGS (1)
  1. LASILIX [Suspect]
     Route: 048
     Dates: start: 20030204, end: 20030305

REACTIONS (4)
  - BALANCE DISORDER [None]
  - BLOOD PH INCREASED [None]
  - HYPERCAPNIA [None]
  - TREMOR [None]
